FAERS Safety Report 16982314 (Version 2)
Quarter: 2019Q4

REPORT INFORMATION
  Report Type: Spontaneous
  Country: FR (occurrence: FR)
  Receive Date: 20191101
  Receipt Date: 20191216
  Transmission Date: 20200122
  Serious: Yes (Hospitalization)
  Sender: FDA-Public Use
  Company Number: FR-ORION CORPORATION ORION PHARMA-19_00007349

PATIENT
  Age: 82 Year
  Sex: Female
  Weight: 58.8 kg

DRUGS (4)
  1. PANTOPRAZOL MYLAN [Interacting]
     Active Substance: PANTOPRAZOLE SODIUM
     Indication: PROPHYLAXIS AGAINST GASTROINTESTINAL ULCER
     Dosage: STRENGTH: 40 MG
     Route: 048
  2. OFLOXACINE MYLAN [Interacting]
     Active Substance: OFLOXACIN
     Indication: URINARY TRACT INFECTION
     Dosage: STRENGTH: 200 MG
     Route: 048
     Dates: start: 20190813, end: 20190816
  3. IMETH [Suspect]
     Active Substance: METHOTREXATE SODIUM
     Indication: RHEUMATOID ARTHRITIS
     Dosage: STRENGTH: 10 MG
     Route: 048
     Dates: start: 20160302, end: 20190820
  4. AMOXICILLINE ACIDE CLAVULANIQUE SANDOZ [Interacting]
     Active Substance: AMOXICILLIN\CLAVULANATE POTASSIUM
     Indication: COLITIS
     Route: 042
     Dates: start: 20190826, end: 20190828

REACTIONS (4)
  - Drug interaction [Unknown]
  - Clostridium difficile colitis [Not Recovered/Not Resolved]
  - Stomatitis [Not Recovered/Not Resolved]
  - Pancytopenia [Recovered/Resolved]

NARRATIVE: CASE EVENT DATE: 20190826
